FAERS Safety Report 19360777 (Version 1)
Quarter: 2021Q2

REPORT INFORMATION
  Report Type: Report from Study
  Country: SK (occurrence: SK)
  Receive Date: 20210601
  Receipt Date: 20210601
  Transmission Date: 20210717
  Serious: Yes (Other)
  Sender: FDA-Public Use
  Company Number: SK-TAKEDA-2021TUS029900

PATIENT
  Age: 68 Year
  Sex: Male

DRUGS (1)
  1. BORTEZOMIB. [Suspect]
     Active Substance: BORTEZOMIB
     Indication: PRODUCT USED FOR UNKNOWN INDICATION
     Dosage: UNK
     Route: 065

REACTIONS (5)
  - Performance status decreased [Unknown]
  - Off label use [Unknown]
  - Hypotension [Unknown]
  - Product use in unapproved indication [Unknown]
  - Dyspnoea [Unknown]
